FAERS Safety Report 16820460 (Version 1)
Quarter: 2019Q3

REPORT INFORMATION
  Report Type: Spontaneous
  Country: US (occurrence: US)
  Receive Date: 20190918
  Receipt Date: 20190918
  Transmission Date: 20191005
  Serious: Yes (Death, Other)
  Sender: FDA-Public Use
  Company Number: US-SUNOVION-2019SUN003856

PATIENT

DRUGS (3)
  1. LITHIUM. [Concomitant]
     Active Substance: LITHIUM
     Indication: BIPOLAR DISORDER
     Dosage: 1200 MG, QD (MORE WHEN PREGNANT/4 PILLS A DAY/PO)
     Route: 064
  2. LATUDA [Suspect]
     Active Substance: LURASIDONE HYDROCHLORIDE
     Indication: BIPOLAR DISORDER
     Dosage: 40 MG
     Route: 064
  3. PRENATAL VITAMINS [Concomitant]
     Active Substance: VITAMINS
     Dosage: UNK BEFORE AND AFTER PREGNANCY
     Route: 064

REACTIONS (3)
  - Umbilical cord around neck [Fatal]
  - Foetal exposure during pregnancy [Unknown]
  - Stillbirth [Fatal]

NARRATIVE: CASE EVENT DATE: 20190522
